FAERS Safety Report 5335357-0 (Version None)
Quarter: 2007Q2

REPORT INFORMATION
  Report Type: 
  Country: None (occurrence: None)
  Receive Date: 20070321
  Receipt Date: 20060206
  Transmission Date: 20071010
  Serious: Yes (Death)
  Sender: FDA-Public Use
  Company Number: 02100-USA-06-0004

PATIENT
  Age: 65 Year
  Sex: Male

DRUGS (7)
  1. OPC-13013 [Suspect]
     Indication: SKIN ULCER
     Dosage: 100 MG BID ORAL
     Route: 048
     Dates: start: 20040419, end: 20040514
  2. OPC-13013 [Suspect]
     Indication: SKIN ULCER
     Dosage: 50 MG QD ORAL
     Route: 048
     Dates: start: 20040419, end: 20040514
  3. PLACEBO [Suspect]
     Indication: SKIN ULCER
     Dosage: 2 DF BID ORAL
     Route: 048
     Dates: start: 20040419, end: 20040514
  4. PLACEBO [Suspect]
     Indication: SKIN ULCER
     Dosage: 1 DF BID ORAL
     Route: 048
     Dates: start: 20040419, end: 20040514
  5. GLUCOPHAGE [Concomitant]
  6. GLUCOTROL [Concomitant]
  7. GLUCOVANCE [Concomitant]

REACTIONS (1)
  - MYOCARDIAL INFARCTION [None]
